FAERS Safety Report 4920478-4 (Version None)
Quarter: 2006Q1

REPORT INFORMATION
  Report Type: 
  Country: None (occurrence: None)
  Receive Date: 20060223
  Receipt Date: 20051019
  Transmission Date: 20060701
  Serious: Yes (Hospitalization, Other)
  Sender: FDA-Public Use
  Company Number: US-MERCK-0510USA08132

PATIENT
  Age: 74 Year
  Sex: Female
  Weight: 82 kg

DRUGS (3)
  1. VIOXX [Suspect]
     Indication: ARTHRITIS
     Route: 048
     Dates: start: 20000101, end: 20040101
  2. ISOSORBIDE [Concomitant]
     Route: 065
  3. LIPITOR [Concomitant]
     Route: 065

REACTIONS (12)
  - ANGINA PECTORIS [None]
  - ARRHYTHMIA [None]
  - BLOOD CHOLESTEROL INCREASED [None]
  - CEREBROVASCULAR ACCIDENT [None]
  - DIABETES MELLITUS [None]
  - GASTROOESOPHAGEAL REFLUX DISEASE [None]
  - INFECTION [None]
  - INFLAMMATION [None]
  - MYOCARDIAL INFARCTION [None]
  - PAIN [None]
  - SWELLING [None]
  - ULCER [None]
